FAERS Safety Report 23519515 (Version 3)
Quarter: 2024Q3

REPORT INFORMATION
  Report Type: Spontaneous
  Country: US (occurrence: US)
  Receive Date: 20240213
  Receipt Date: 20240903
  Transmission Date: 20241016
  Serious: No
  Sender: SANOFI AVENTIS
  Company Number: US-SA-SAC20240209000078

PATIENT
  Age: 70 Year
  Sex: Female

DRUGS (2)
  1. DUPIXENT [Suspect]
     Active Substance: DUPILUMAB
     Indication: Dermatitis atopic
     Dosage: UNK, 1X
     Route: 058
     Dates: start: 20240206, end: 20240206
  2. DUPIXENT [Suspect]
     Active Substance: DUPILUMAB
     Dosage: 300 MG,QOW
     Route: 058
     Dates: start: 2024

REACTIONS (4)
  - Injection site erythema [Unknown]
  - Injection site pruritus [Unknown]
  - Eczema [Unknown]
  - Therapeutic response shortened [Unknown]

NARRATIVE: CASE EVENT DATE: 20240101
